FAERS Safety Report 7972598-8 (Version None)
Quarter: 2011Q4

REPORT INFORMATION
  Report Type: 
  Country: None (occurrence: None)
  Receive Date: 20111213
  Receipt Date: 20111202
  Transmission Date: 20120403
  Serious: Yes (Other)
  Sender: FDA-Public Use
  Company Number: ZA-JNJFOC-20111106213

PATIENT
  Age: 73 Year
  Sex: Male

DRUGS (10)
  1. PERINDOPRIL [Concomitant]
  2. ZOLPIDEM [Concomitant]
  3. XARELTO [Suspect]
     Indication: KNEE ARTHROPLASTY
     Route: 048
  4. CALCICARD [Concomitant]
  5. ENOXAPARIN SODIUM [Concomitant]
     Dates: start: 20111001, end: 20111008
  6. TRAMADOL HYDROCHLORIDE/ACETAMINOPHEN [Concomitant]
  7. CLINDAMYCIN [Concomitant]
  8. ATORVASTATIN [Concomitant]
  9. XEFO [Concomitant]
  10. MEPERIDINE HCL [Concomitant]

REACTIONS (1)
  - PULMONARY EMBOLISM [None]
